FAERS Safety Report 5362224-9 (Version None)
Quarter: 2007Q2

REPORT INFORMATION
  Report Type: 
  Country: None (occurrence: None)
  Receive Date: 20070618
  Receipt Date: 20070618
  Transmission Date: 20071010
  Serious: No
  Sender: FDA-Public Use
  Company Number: None

PATIENT

DRUGS (2)
  1. POTASSIUM CHLORIDE [Suspect]
     Dosage: INJECTABLE
  2. FUROSEMIDE [Suspect]
     Dosage: INJECTABLE

REACTIONS (5)
  - ARRHYTHMIA [None]
  - CARDIO-RESPIRATORY ARREST [None]
  - DRUG TOXICITY [None]
  - MEDICATION ERROR [None]
  - WRONG DRUG ADMINISTERED [None]
